FAERS Safety Report 5494185-6 (Version None)
Quarter: 2007Q4

REPORT INFORMATION
  Report Type: 
  Country: None (occurrence: None)
  Receive Date: 20071024
  Receipt Date: 20071016
  Transmission Date: 20080405
  Serious: Yes (Other)
  Sender: FDA-Public Use
  Company Number: PHEH2007US10480

PATIENT
  Age: 72 Year
  Sex: Male

DRUGS (3)
  1. ZOMETA [Suspect]
     Indication: MULTIPLE MYELOMA
     Dosage: 4 MG QMO
     Route: 042
     Dates: start: 20061021, end: 20070525
  2. DECADRON [Concomitant]
     Route: 058
     Dates: start: 20061027
  3. THALIDOMIDE [Concomitant]
     Indication: MULTIPLE MYELOMA
     Dosage: 200 MG, QD
     Dates: start: 20061020, end: 20070202

REACTIONS (6)
  - DEEP VEIN THROMBOSIS [None]
  - GINGIVAL BLISTER [None]
  - MOUTH HAEMORRHAGE [None]
  - ORAL DISORDER [None]
  - OSTEONECROSIS [None]
  - PAIN [None]
